FAERS Safety Report 25287249 (Version 1)
Quarter: 2025Q2

REPORT INFORMATION
  Report Type: Spontaneous
  Country: US (occurrence: US)
  Receive Date: 20250509
  Receipt Date: 20250509
  Transmission Date: 20250717
  Serious: Yes (Other)
  Sender: BAXTER
  Company Number: US-BAXTER-2025BAX015067

PATIENT
  Age: 28 Year
  Sex: Male
  Weight: 73 kg

DRUGS (2)
  1. BREVIBLOC [Suspect]
     Active Substance: ESMOLOL HYDROCHLORIDE
     Indication: Cardiovascular event prophylaxis
     Route: 065
     Dates: start: 202504
  2. BREVIBLOC [Suspect]
     Active Substance: ESMOLOL HYDROCHLORIDE
     Indication: Blood pressure management

REACTIONS (1)
  - Drug ineffective [Unknown]

NARRATIVE: CASE EVENT DATE: 20250430
